FAERS Safety Report 8486595 (Version 3)
Quarter: 2013Q4

REPORT INFORMATION
  Report Type: Report from Study
  Country: CA (occurrence: CA)
  Receive Date: 20120402
  Receipt Date: 20131226
  Transmission Date: 20140711
  Serious: Yes (Other)
  Sender: FDA-Public Use
  Company Number: PHHY2012CA027632

PATIENT
  Age: 63 Year
  Sex: Female

DRUGS (6)
  1. ACLASTA [Suspect]
     Indication: OSTEOPENIA
     Dosage: UNK UKN, ONCE PER YEAR
     Route: 042
     Dates: start: 20100217
  2. ACLASTA [Suspect]
     Dosage: UNK UKN, ONCE PER YEAR
     Route: 042
     Dates: start: 20110511
  3. IMOVANE [Concomitant]
     Dosage: UNK UKN, UNK
  4. SYNTHROID [Concomitant]
     Dosage: UNK UKN, UNK
  5. METFORMIN [Concomitant]
     Dosage: UNK UKN, UNK
  6. CIPRALEX [Concomitant]
     Dosage: UNK UKN, UNK

REACTIONS (1)
  - Colon cancer [Recovered/Resolved]
